FAERS Safety Report 14581707 (Version 2)
Quarter: 2018Q2

REPORT INFORMATION
  Report Type: Spontaneous
  Country: TR (occurrence: TR)
  Receive Date: 20180228
  Receipt Date: 20180422
  Transmission Date: 20180711
  Serious: Yes (Hospitalization, Other)
  Sender: FDA-Public Use
  Company Number: TR-APOTEX-2018AP007482

PATIENT
  Age: 20 Year
  Sex: Female

DRUGS (3)
  1. QUETIAPINE. [Suspect]
     Active Substance: QUETIAPINE
     Indication: BIPOLAR DISORDER
     Dosage: 300 MG, UNK
     Route: 065
  2. HALOPERIDOL. [Suspect]
     Active Substance: HALOPERIDOL
     Indication: AGITATION
     Dosage: UNK
     Route: 030
  3. BIPERIDEN [Concomitant]
     Active Substance: BIPERIDEN
     Indication: SPEECH DISORDER
     Dosage: UNK
     Route: 065

REACTIONS (5)
  - Dystonia [Recovered/Resolved]
  - Tongue haematoma [Recovered/Resolved]
  - Tongue biting [Recovered/Resolved]
  - Tongue injury [Recovered/Resolved]
  - Tongue oedema [Recovered/Resolved]
